FAERS Safety Report 20449799 (Version 3)
Quarter: 2022Q3

REPORT INFORMATION
  Report Type: Report from Study
  Country: FR (occurrence: FR)
  Receive Date: 20220209
  Receipt Date: 20220722
  Transmission Date: 20221027
  Serious: Yes (Other)
  Sender: FDA-Public Use
  Company Number: FR-ASTELLAS-2022US004932

PATIENT
  Age: 53 Year
  Sex: Male

DRUGS (13)
  1. TACROLIMUS [Suspect]
     Active Substance: TACROLIMUS
     Indication: Immunosuppression
     Route: 048
     Dates: start: 20191001
  2. CERTICAN [Concomitant]
     Active Substance: EVEROLIMUS
     Indication: Immunosuppression
     Dosage: 1.5 UNITS UNKNOWN TOTAL DAILY DOSE
     Route: 065
     Dates: start: 20180322, end: 20180405
  3. CERTICAN [Concomitant]
     Active Substance: EVEROLIMUS
     Dosage: 2 UNITS UNKNOWN TOTAL DAILY DOSE
     Route: 065
     Dates: start: 20180406, end: 20180515
  4. CERTICAN [Concomitant]
     Active Substance: EVEROLIMUS
     Dosage: 1.5 UNITS UNKNOWN TOTAL DAILY DOSE
     Route: 065
     Dates: start: 20180516, end: 20180606
  5. CERTICAN [Concomitant]
     Active Substance: EVEROLIMUS
     Dosage: 1 UNITS UNKNOWN TOTAL DAILY DOSE
     Route: 065
     Dates: start: 20180607, end: 20180912
  6. CERTICAN [Concomitant]
     Active Substance: EVEROLIMUS
     Dosage: 2 UNITS UNKNOWN TOTAL DAILY DOSE
     Route: 065
     Dates: start: 20180913, end: 20200506
  7. CERTICAN [Concomitant]
     Active Substance: EVEROLIMUS
     Dosage: 1.5  UNITS UNKNOWN TOTAL DAILY DOSE
     Route: 065
     Dates: start: 20200507, end: 20200916
  8. CERTICAN [Concomitant]
     Active Substance: EVEROLIMUS
     Dosage: 1 UNITS UNKNOWN TOTAL DAILY DOSE
     Route: 065
     Dates: start: 20200917
  9. PREDNISONE [Concomitant]
     Active Substance: PREDNISONE
     Indication: Immunosuppression
     Dosage: 20 UNITS UNKNOWN TOTAL DAILY DOSE
     Route: 065
     Dates: start: 20170722, end: 20170807
  10. PREDNISONE [Concomitant]
     Active Substance: PREDNISONE
     Dosage: 15 UNITS UNKNOWN  TOTAL DAILY DOSE
     Route: 065
     Dates: start: 20170808, end: 20170901
  11. PREDNISONE [Concomitant]
     Active Substance: PREDNISONE
     Dosage: 10 UNITS UNKNOWN  TOTAL DAILY DOSE
     Route: 065
     Dates: start: 20170902, end: 20170922
  12. PREDNISONE [Concomitant]
     Active Substance: PREDNISONE
     Dosage: 7.5 UNITS UNKNOWN  TOTAL DAILY DOSE
     Route: 065
     Dates: start: 20170923, end: 20171013
  13. PREDNISONE [Concomitant]
     Active Substance: PREDNISONE
     Dosage: 5 UNITS UNKNOWN TOTAL DAILY DOSE
     Route: 065
     Dates: start: 20171014

REACTIONS (2)
  - Hepatitis cholestatic [Not Recovered/Not Resolved]
  - Hepatic cytolysis [Recovered/Resolved]

NARRATIVE: CASE EVENT DATE: 20191101
